FAERS Safety Report 6771586-7 (Version None)
Quarter: 2010Q2

REPORT INFORMATION
  Report Type: 
  Country: None (occurrence: None)
  Receive Date: 20100616
  Receipt Date: 20100603
  Transmission Date: 20101027
  Serious: Yes (Hospitalization)
  Sender: FDA-Public Use
  Company Number: PHHY2010MX36804

PATIENT
  Age: 67 Year
  Sex: Female

DRUGS (5)
  1. DIOVAN HCT [Suspect]
     Indication: HYPERTENSION
     Dosage: 1 TABLET (160/25 MG) PER DAY
     Dates: start: 19990601
  2. PRAVASTATIN [Concomitant]
     Dosage: UNK
     Dates: start: 20030601
  3. BEZAFIBRATE [Concomitant]
     Dosage: UNK
     Dates: start: 20030601
  4. PANTOPRAZOLE [Concomitant]
     Dosage: UNK
     Dates: start: 20030601
  5. TRIMEBUTINE [Concomitant]
     Dosage: UNK
     Dates: start: 20100301

REACTIONS (2)
  - BREAST CANCER [None]
  - MALIGNANT BREAST LUMP REMOVAL [None]
